FAERS Safety Report 6904119-2 (Version None)
Quarter: 2010Q3

REPORT INFORMATION
  Report Type: 
  Country: None (occurrence: None)
  Receive Date: 20100804
  Receipt Date: 20090318
  Transmission Date: 20110219
  Serious: Yes (Other)
  Sender: FDA-Public Use
  Company Number: US-PFIZER INC-2009185660

PATIENT
  Sex: Female
  Weight: 61.224 kg

DRUGS (6)
  1. LYRICA [Suspect]
     Indication: FIBROMYALGIA
  2. NORCO [Concomitant]
  3. ESTROGENS SOL/INJ [Concomitant]
  4. CELEXA [Concomitant]
  5. CYMBALTA [Concomitant]
  6. EVISTA [Concomitant]

REACTIONS (3)
  - HYPERAESTHESIA [None]
  - NEURALGIA [None]
  - PAIN [None]
